FAERS Safety Report 7411853-7 (Version None)
Quarter: 2011Q2

REPORT INFORMATION
  Report Type: 
  Country: None (occurrence: None)
  Receive Date: 20110413
  Receipt Date: 20110408
  Transmission Date: 20111010
  Serious: Yes (Other)
  Sender: FDA-Public Use
  Company Number: US-BAYER-2011-031413

PATIENT
  Sex: Female

DRUGS (1)
  1. YASMIN [Suspect]
     Dosage: UNK, QD
     Route: 048
     Dates: start: 20030601, end: 20080701

REACTIONS (8)
  - ASCITES [None]
  - ANXIETY [None]
  - GALLBLADDER DISORDER [None]
  - INJURY [None]
  - PAIN [None]
  - GASTROINTESTINAL DISORDER [None]
  - GENERAL PHYSICAL HEALTH DETERIORATION [None]
  - EMOTIONAL DISTRESS [None]
